FAERS Safety Report 16116754 (Version 1)
Quarter: 2019Q1

REPORT INFORMATION
  Report Type: Other
  Country: FR (occurrence: FR)
  Receive Date: 20190326
  Receipt Date: 20190326
  Transmission Date: 20190418
  Serious: Yes (Hospitalization)
  Sender: FDA-Public Use
  Company Number: FR-EMCURE PHARMACEUTICALS LTD-2019-EPL-0139

PATIENT
  Age: 59 Year
  Sex: Female

DRUGS (8)
  1. BACTRIM [Concomitant]
     Active Substance: SULFAMETHOXAZOLE\TRIMETHOPRIM
  2. BICNU [Suspect]
     Active Substance: CARMUSTINE
     Indication: PRODUCT USED FOR UNKNOWN INDICATION
     Dosage: 1 TOTAL
     Route: 042
  3. ARACYTINE [Suspect]
     Active Substance: CYTARABINE
     Indication: PRODUCT USED FOR UNKNOWN INDICATION
     Dosage: 1 TOTAL
     Route: 042
  4. FOLIC ACID. [Concomitant]
     Active Substance: FOLIC ACID
  5. ALKERAN [Suspect]
     Active Substance: MELPHALAN
     Indication: PRODUCT USED FOR UNKNOWN INDICATION
     Dosage: 1 TOTAL
     Route: 042
  6. ZOLPIDEM [Concomitant]
     Active Substance: ZOLPIDEM\ZOLPIDEM TARTRATE
  7. DEROXAT [Concomitant]
     Active Substance: PAROXETINE HYDROCHLORIDE
  8. ETOPOSIDE TEVA [Suspect]
     Active Substance: ETOPOSIDE
     Indication: PRODUCT USED FOR UNKNOWN INDICATION
     Dosage: 1 TOTAL
     Route: 042

REACTIONS (2)
  - Stomatitis [Recovered/Resolved]
  - Pneumonia [Recovered/Resolved]

NARRATIVE: CASE EVENT DATE: 20060215
